FAERS Safety Report 7820181-7 (Version None)
Quarter: 2011Q4

REPORT INFORMATION
  Report Type: 
  Country: None (occurrence: None)
  Receive Date: 20111018
  Receipt Date: 20111012
  Transmission Date: 20120403
  Serious: Yes (Death, Hospitalization)
  Sender: FDA-Public Use
  Company Number: JP-PFIZER INC-2011244481

PATIENT
  Age: 69 Year
  Sex: Male

DRUGS (4)
  1. GELPART [Suspect]
     Indication: HEPATIC CIRRHOSIS
  2. EPIRUBICIN HYDROCHLORIDE [Suspect]
     Indication: HEPATIC CIRRHOSIS
  3. EPIRUBICIN HYDROCHLORIDE [Suspect]
     Indication: HEPATIC NEOPLASM MALIGNANT
     Dosage: 50 MG, UNK
     Route: 013
  4. GELPART [Suspect]
     Indication: HEPATIC NEOPLASM MALIGNANT
     Route: 013

REACTIONS (2)
  - LIVER ABSCESS [None]
  - CLOSTRIDIAL INFECTION [None]
